FAERS Safety Report 8588048-7 (Version None)
Quarter: 2012Q3

REPORT INFORMATION
  Report Type: 
  Country: None (occurrence: None)
  Receive Date: 20120813
  Receipt Date: 20120810
  Transmission Date: 20120928
  Serious: No
  Sender: FDA-Public Use
  Company Number: US-PFIZER INC-2012196009

PATIENT
  Sex: Female

DRUGS (2)
  1. EFFEXOR [Suspect]
     Dosage: UNK
     Dates: end: 20120805
  2. VIIBRYD [Suspect]
     Dosage: UNK
     Dates: start: 20120806

REACTIONS (1)
  - WITHDRAWAL SYNDROME [None]
